FAERS Safety Report 14767567 (Version 7)
Quarter: 2023Q4

REPORT INFORMATION
  Report Type: Spontaneous
  Country: US (occurrence: US)
  Receive Date: 20180417
  Receipt Date: 20231115
  Transmission Date: 20240110
  Serious: No
  Sender: FDA-Public Use
  Company Number: US-PFIZER INC-2018155436

PATIENT
  Age: 63 Year
  Sex: Female

DRUGS (1)
  1. BOSULIF [Suspect]
     Active Substance: BOSUTINIB MONOHYDRATE
     Dosage: TAKE 1 TAB BY MOUTH ONCE DAILY AT SAME TIME WITH FOOD
     Route: 048

REACTIONS (1)
  - Memory impairment [Unknown]
